FAERS Safety Report 4816123-9 (Version None)
Quarter: 2005Q4

REPORT INFORMATION
  Report Type: 
  Country: None (occurrence: None)
  Receive Date: 20051031
  Receipt Date: 20051021
  Transmission Date: 20060501
  Serious: Yes (Hospitalization)
  Sender: FDA-Public Use
  Company Number: BE-ABBOTT-05P-013-0315440-00

PATIENT
  Sex: Male

DRUGS (31)
  1. ZEMPLAR [Suspect]
     Indication: DRUG USE FOR UNKNOWN INDICATION
     Route: 042
     Dates: start: 20050523
  2. ACTRAPID [Concomitant]
     Indication: DIABETES MELLITUS
     Dates: start: 20010608
  3. ISOPHANE INSULIN [Concomitant]
     Indication: DIABETES MELLITUS
     Dates: start: 20010608
  4. CALCIUM CARBONATE [Concomitant]
     Indication: MINERAL SUPPLEMENTATION
     Dates: start: 20050218
  5. DILTIAZEM HYDROCHLORIDE [Concomitant]
     Indication: HYPERTENSION
     Dates: start: 19981030
  6. POTASSIUM LOSARTAN [Concomitant]
     Indication: HYPERTENSION
     Dates: start: 20010622
  7. MOXONIDINE [Concomitant]
     Indication: HYPERTENSION
     Dates: start: 20020610
  8. ATORVASTATIN CALCIUM [Concomitant]
     Indication: HYPERCHOLESTEROLAEMIA
     Dates: start: 19981030
  9. ASPIRIN [Concomitant]
     Indication: THROMBOSIS PROPHYLAXIS
     Dates: start: 19980101
  10. ERYTHROPROTEIN ALFA [Concomitant]
     Indication: ANAEMIA PROPHYLAXIS
     Dosage: 800 IU MONDAY 4000 IU WED. 8000 IU FRIDAY
     Dates: start: 19981111, end: 20050805
  11. KAYEXALAAT SODIUM [Concomitant]
     Indication: BLOOD POTASSIUM INCREASED
     Dates: start: 20041021
  12. SALMETEROL [Concomitant]
     Indication: CHRONIC OBSTRUCTIVE PULMONARY DISEASE
     Dates: start: 20050209
  13. SALBUTAMOL [Concomitant]
     Indication: CHRONIC OBSTRUCTIVE PULMONARY DISEASE
     Dosage: NOT REPORTED
     Dates: start: 20000129
  14. FOLIC ACID [Concomitant]
     Indication: VITAMIN SUPPLEMENTATION
     Dates: start: 20030114, end: 20050909
  15. FOLIC ACID [Concomitant]
     Dates: start: 20050909
  16. CYANOCOBALAMIN [Concomitant]
     Indication: VITAMIN SUPPLEMENTATION
     Dates: start: 20030114, end: 20050909
  17. CYANOCOBALAMIN [Concomitant]
     Dates: start: 20050909
  18. ACETAMINOPHEN [Concomitant]
     Indication: HEADACHE
  19. ACETAMINOPHEN [Concomitant]
     Dates: start: 20050921, end: 20050921
  20. ACETAMINOPHEN [Concomitant]
     Indication: ARTERIOVENOUS FISTULA SITE COMPLICATION
     Dates: start: 20050921, end: 20050921
  21. ACETAMINOPHEN [Concomitant]
     Dates: start: 20050919, end: 20050919
  22. IRON SACCHAROSE [Concomitant]
     Indication: MINERAL SUPPLEMENTATION
     Dates: start: 20050711, end: 20050905
  23. IRON SACCHAROSE [Concomitant]
     Dates: start: 20051003
  24. ERYTHROPOIETINE ALFA [Concomitant]
     Indication: ANAEMIA PROPHYLAXIS
     Dosage: 4000 IU MON. 4000 IU WED AND 4000 IU FRI
     Dates: start: 20050808, end: 20050826
  25. ERYTHROPOIETINE ALFA [Concomitant]
     Dosage: 4000 IU ON MONDAY
     Dates: start: 20050905
  26. ERYTHROPOIETINE ALFA [Concomitant]
     Dates: start: 20050905
  27. DUOVENT [Concomitant]
     Indication: CHRONIC OBSTRUCTIVE PULMONARY DISEASE
     Dates: start: 20050921, end: 20050922
  28. ALPRAZOLAM [Concomitant]
     Indication: SEDATIVE THERAPY
     Dates: start: 20050921, end: 20050921
  29. ALPRAZOLAM [Concomitant]
     Dates: start: 20050921, end: 20050921
  30. DUOVENT [Concomitant]
     Dates: start: 20050921, end: 20050922
  31. ALFA-RIX [Concomitant]
     Indication: INFLUENZA IMMUNISATION
     Dates: start: 20051014, end: 20051014

REACTIONS (1)
  - ARTERIOVENOUS FISTULA SITE COMPLICATION [None]
